FAERS Safety Report 8517884 (Version 5)
Quarter: 2013Q4

REPORT INFORMATION
  Report Type: Spontaneous
  Country: US (occurrence: US)
  Receive Date: 20120417
  Receipt Date: 20131126
  Transmission Date: 20140711
  Serious: Yes (Hospitalization, Other)
  Sender: FDA-Public Use
  Company Number: US-ASTRAZENECA-2011SE76210

PATIENT
  Age: 60 Year
  Sex: Female
  Weight: 79.4 kg

DRUGS (20)
  1. NEXIUM [Suspect]
     Indication: GASTROOESOPHAGEAL REFLUX DISEASE
     Route: 048
     Dates: start: 2007, end: 201306
  2. NEXIUM [Suspect]
     Indication: GASTROOESOPHAGEAL REFLUX DISEASE
     Route: 048
     Dates: start: 2007, end: 201306
  3. NEXIUM [Suspect]
     Indication: ULCER
     Route: 048
     Dates: start: 2007, end: 201306
  4. NEXIUM [Suspect]
     Indication: GASTROOESOPHAGEAL REFLUX DISEASE
     Route: 048
     Dates: start: 201306, end: 201310
  5. NEXIUM [Suspect]
     Indication: GASTROOESOPHAGEAL REFLUX DISEASE
     Route: 048
     Dates: start: 201306, end: 201310
  6. NEXIUM [Suspect]
     Indication: ULCER
     Route: 048
     Dates: start: 201306, end: 201310
  7. NEXIUM [Suspect]
     Indication: GASTROOESOPHAGEAL REFLUX DISEASE
     Route: 048
     Dates: start: 201310, end: 20131014
  8. NEXIUM [Suspect]
     Indication: GASTROOESOPHAGEAL REFLUX DISEASE
     Route: 048
     Dates: start: 201310, end: 20131014
  9. NEXIUM [Suspect]
     Indication: ULCER
     Route: 048
     Dates: start: 201310, end: 20131014
  10. NEXIUM [Suspect]
     Indication: GASTROOESOPHAGEAL REFLUX DISEASE
     Route: 048
  11. NEXIUM [Suspect]
     Indication: GASTROOESOPHAGEAL REFLUX DISEASE
     Route: 048
  12. NEXIUM [Suspect]
     Indication: ULCER
     Route: 048
  13. LISINOPRIL [Suspect]
     Indication: HYPERTENSION
     Route: 048
     Dates: start: 2011
  14. LISINOPRIL [Suspect]
     Indication: HYPERTENSION
     Route: 048
  15. FLEXERIL [Concomitant]
     Indication: ARTHRALGIA
     Route: 048
  16. FUORICET [Concomitant]
     Indication: MIGRAINE
     Route: 048
     Dates: start: 2009
  17. TOPAMAX GENERIC [Concomitant]
     Indication: MIGRAINE
     Route: 048
     Dates: start: 201307
  18. TYLENOL [Concomitant]
     Indication: PAIN
     Route: 048
  19. SUDAFED [Concomitant]
     Indication: SEASONAL ALLERGY
     Dosage: 1 OR 2 TABLETS PRN
     Route: 048
  20. KLONIPIN [Concomitant]
     Indication: PANIC ATTACK
     Route: 048
     Dates: start: 2003

REACTIONS (19)
  - Chest pain [Unknown]
  - Coronary artery disease [Unknown]
  - Hypertension [Unknown]
  - Gastrooesophageal reflux disease [Not Recovered/Not Resolved]
  - Dizziness [Unknown]
  - Dyspnoea [Unknown]
  - Ulcer [Unknown]
  - Barrett^s oesophagus [Unknown]
  - Hiatus hernia [Unknown]
  - Gastric disorder [Unknown]
  - Eczema vesicular [Unknown]
  - Photopsia [Not Recovered/Not Resolved]
  - Asthenia [Recovered/Resolved]
  - Fatigue [Recovered/Resolved]
  - Abdominal pain upper [Unknown]
  - Headache [Unknown]
  - Drug dose omission [Not Recovered/Not Resolved]
  - Off label use [Unknown]
  - Inappropriate schedule of drug administration [Unknown]
